FAERS Safety Report 20929191 (Version 1)
Quarter: 2022Q2

REPORT INFORMATION
  Report Type: Spontaneous
  Country: US (occurrence: US)
  Receive Date: 20220608
  Receipt Date: 20220608
  Transmission Date: 20220721
  Serious: Yes (Disabling)
  Sender: FDA-Public Use
  Company Number: US-BRISTOL-MYERS SQUIBB COMPANY-2022-042854

PATIENT
  Age: 80 Year
  Sex: Male

DRUGS (1)
  1. REBLOZYL [Suspect]
     Active Substance: LUSPATERCEPT-AAMT
     Indication: Myelodysplastic syndrome
     Dosage: 3 DOSES
     Route: 042
     Dates: start: 20190401, end: 20220301

REACTIONS (2)
  - Drug ineffective [Not Recovered/Not Resolved]
  - Haemoglobin decreased [Not Recovered/Not Resolved]
